FAERS Safety Report 13336841 (Version 1)
Quarter: 2017Q1

REPORT INFORMATION
  Report Type: Spontaneous
  Country: US (occurrence: US)
  Receive Date: 20170315
  Receipt Date: 20170315
  Transmission Date: 20170428
  Serious: No
  Sender: FDA-Public Use
  Company Number: US-PFIZER INC-2015025838

PATIENT
  Age: 74 Year
  Sex: Female
  Weight: 63.39 kg

DRUGS (18)
  1. LYRICA [Suspect]
     Active Substance: PREGABALIN
     Indication: DIABETIC NEUROPATHY
     Dosage: 75 MG, TWICE A DAY
     Route: 048
     Dates: start: 20141224
  2. DIFLUCAN [Concomitant]
     Active Substance: FLUCONAZOLE
     Dosage: 150 MG, AS NEEDED
     Route: 048
     Dates: start: 20140827
  3. VITAMIN B12 [Concomitant]
     Active Substance: CYANOCOBALAMIN
     Dosage: 1000 UG, DAILY
     Route: 048
     Dates: start: 20130306, end: 20141229
  4. NORCO [Concomitant]
     Active Substance: ACETAMINOPHEN\HYDROCODONE BITARTRATE
     Indication: PAIN
     Dosage: UNK UNK, AS NEEDED (1 TABLET BY MOUTH EVERY 4 (FOUR) HOURS AS NEEDED)
     Route: 048
     Dates: start: 20141218
  5. NORCO [Concomitant]
     Active Substance: ACETAMINOPHEN\HYDROCODONE BITARTRATE
     Dosage: 0.25 MG, AS NEEDED (0.25 (1/4) TAB EVERY 4 HOURS AS NEEDED) [HYDROCODONE MG][ACETAMINOPHEN325MG]
     Route: 048
     Dates: start: 20150107
  6. ALEVE [Concomitant]
     Active Substance: NAPROXEN SODIUM
     Dosage: 220 MG, AS NEEDED (2 (TWO) TIMES DAILY AS NEEDED)
     Route: 048
  7. OCUVITE [Concomitant]
     Active Substance: VITAMINS
     Dosage: UNK UNK, DAILY
     Route: 048
  8. ZOCOR [Concomitant]
     Active Substance: SIMVASTATIN
     Dosage: 40 MG, 1X/DAY (NIGHTLY)
     Route: 048
     Dates: start: 20140825
  9. LYRICA [Suspect]
     Active Substance: PREGABALIN
     Indication: PAIN
     Dosage: 600 MG, UNK (1 IN THE MORNING, 1 IN THE AFTERNOON, AND 2 AT BEDTIME)
     Route: 048
     Dates: start: 20141229, end: 201702
  10. VITAMIN E [Concomitant]
     Active Substance: .ALPHA.-TOCOPHEROL
     Dosage: 600 IU, DAILY
     Route: 048
  11. NORVASC [Concomitant]
     Active Substance: AMLODIPINE BESYLATE
     Indication: BLOOD PRESSURE ABNORMAL
     Dosage: 10 MG, ALTERNATE DAY (1 TAB EVERY OTHER DAY)
     Dates: start: 20140827
  12. ASPIRIN. [Concomitant]
     Active Substance: ASPIRIN
     Dosage: 81 MG, DAILY
     Route: 048
  13. VITAMIN B12 [Concomitant]
     Active Substance: CYANOCOBALAMIN
     Dosage: 500 UG, DAILY
     Route: 048
  14. PRILOSEC [Concomitant]
     Active Substance: OMEPRAZOLE MAGNESIUM
     Dosage: 40 MG, DAILY
     Route: 048
     Dates: start: 20141103, end: 20151103
  15. DITROPAN [Concomitant]
     Active Substance: OXYBUTYNIN CHLORIDE
     Indication: BLADDER DISORDER
     Dosage: 5 MG, 3X/DAY
     Route: 048
     Dates: start: 20141218, end: 20151218
  16. DITROPAN [Concomitant]
     Active Substance: OXYBUTYNIN CHLORIDE
     Dosage: 5 MG, AS NEEDED (2.5-5 MG BY MOUTH NIGHTLY AS NEEDED BEFORE BED)
     Route: 048
  17. VITAMIN D3 [Concomitant]
     Active Substance: CHOLECALCIFEROL
     Dosage: 1000 IU, DAILY
     Route: 048
     Dates: start: 20130308, end: 20141229
  18. VITAMIN D3 [Concomitant]
     Active Substance: CHOLECALCIFEROL
     Dosage: 2000 IU, DAILY
     Route: 048
     Dates: start: 20140121, end: 20150121

REACTIONS (4)
  - Pain in extremity [Recovered/Resolved]
  - Arthralgia [Recovered/Resolved]
  - Paraesthesia [Recovered/Resolved]
  - Headache [Recovered/Resolved]

NARRATIVE: CASE EVENT DATE: 201702
